FAERS Safety Report 21029704 (Version 1)
Quarter: 2022Q2

REPORT INFORMATION
  Report Type: Spontaneous
  Country: JP (occurrence: None)
  Receive Date: 20220630
  Receipt Date: 20220630
  Transmission Date: 20220721
  Serious: Yes (Life-Threatening)
  Sender: FDA-Public Use
  Company Number: 2022A233832

PATIENT
  Sex: Male

DRUGS (4)
  1. DAPAGLIFLOZIN [Suspect]
     Active Substance: DAPAGLIFLOZIN
     Dosage: 5.0MG UNKNOWN
     Route: 048
  2. TRAMADOL [Concomitant]
     Active Substance: TRAMADOL
     Dosage: DOSE UNKNOWN
     Route: 048
  3. CALONAL [Concomitant]
     Active Substance: ACETAMINOPHEN
     Dosage: DOSE UNKNOWN
     Route: 048
  4. XARELTO OD [Concomitant]
     Dosage: DOSE UNKNOWN
     Route: 048

REACTIONS (3)
  - Subdural haematoma [Unknown]
  - Loss of consciousness [Unknown]
  - Head injury [Unknown]
